FAERS Safety Report 5798409-7 (Version None)
Quarter: 2008Q3

REPORT INFORMATION
  Report Type: 
  Country: None (occurrence: None)
  Receive Date: 20080702
  Receipt Date: 20080624
  Transmission Date: 20090109
  Serious: Yes (Hospitalization, Other)
  Sender: FDA-Public Use
  Company Number: GB-ROCHE-568993

PATIENT
  Age: 20 Year
  Sex: Male

DRUGS (3)
  1. ISOTRETINOIN [Suspect]
     Indication: DRUG USE FOR UNKNOWN INDICATION
     Route: 065
     Dates: start: 19891201
  2. ISOTRETINOIN [Suspect]
     Route: 065
     Dates: start: 20010101
  3. ISOTRETINOIN [Suspect]
     Route: 065
     Dates: start: 20060301

REACTIONS (4)
  - DEPRESSION [None]
  - LIVER FUNCTION TEST ABNORMAL [None]
  - PSYCHOTIC DISORDER [None]
  - SCHIZOPHRENIA [None]
